FAERS Safety Report 4851734-6 (Version None)
Quarter: 2005Q4

REPORT INFORMATION
  Report Type: 
  Country: None (occurrence: None)
  Receive Date: 20051209
  Receipt Date: 20051209
  Transmission Date: 20060501
  Serious: Yes (Death)
  Sender: FDA-Public Use
  Company Number: None

PATIENT
  Age: 88 Year
  Sex: Female
  Weight: 50 kg

DRUGS (2)
  1. VENOFER [Suspect]
     Indication: ANAEMIA
     Dosage: 500 MG 10/24 1X IV
     Route: 042
     Dates: start: 20051024
  2. VENOFER [Suspect]
     Indication: BLOOD IRON DECREASED
     Dosage: 500 MG 10/24 1X IV
     Route: 042
     Dates: start: 20051024

REACTIONS (11)
  - BLOOD PRESSURE DECREASED [None]
  - CARDIO-RESPIRATORY ARREST [None]
  - FAECAL INCONTINENCE [None]
  - INFUSION RELATED REACTION [None]
  - MUSCULOSKELETAL STIFFNESS [None]
  - NAUSEA [None]
  - OXYGEN SATURATION DECREASED [None]
  - POSTURE ABNORMAL [None]
  - RESPIRATORY RATE INCREASED [None]
  - RETCHING [None]
  - VOMITING [None]
